FAERS Safety Report 9005803 (Version 1)
Quarter: 2013Q1

REPORT INFORMATION
  Report Type: Spontaneous
  Country: US (occurrence: US)
  Receive Date: 20130109
  Receipt Date: 20130109
  Transmission Date: 20140127
  Serious: No
  Sender: FDA-Public Use
  Company Number: US-ABBOTT-12P-163-0927012-00

PATIENT
  Sex: Female

DRUGS (7)
  1. VICODIN [Suspect]
     Indication: PRODUCT USED FOR UNKNOWN INDICATION
  2. CYMBALTA [Suspect]
     Indication: PRODUCT USED FOR UNKNOWN INDICATION
  3. PERCOCET [Suspect]
     Indication: PRODUCT USED FOR UNKNOWN INDICATION
  4. DARVOCET [Suspect]
     Indication: PRODUCT USED FOR UNKNOWN INDICATION
  5. FLECTOR [Suspect]
     Indication: ROTATOR CUFF SYNDROME
  6. NUCENTA [Suspect]
     Indication: PRODUCT USED FOR UNKNOWN INDICATION
  7. GABAPENTIN [Suspect]
     Indication: NERVE INJURY

REACTIONS (2)
  - Vomiting [Unknown]
  - Urticaria [Unknown]
